FAERS Safety Report 10180692 (Version 1)
Quarter: 2014Q2

REPORT INFORMATION
  Report Type: Spontaneous
  Country: US (occurrence: US)
  Receive Date: 20140519
  Receipt Date: 20140519
  Transmission Date: 20141212
  Serious: Yes (Hospitalization, Other)
  Sender: FDA-Public Use
  Company Number: US-TEVA-481585USA

PATIENT
  Sex: Female

DRUGS (2)
  1. ACTIQ [Suspect]
     Indication: PAIN
     Dates: start: 2009
  2. FENTANYL [Suspect]
     Indication: PAIN
     Route: 062
     Dates: start: 2009

REACTIONS (2)
  - Placental disorder [Unknown]
  - Live birth [Unknown]
